FAERS Safety Report 8216044-8 (Version None)
Quarter: 2012Q1

REPORT INFORMATION
  Report Type: 
  Country: None (occurrence: None)
  Receive Date: 20120313
  Receipt Date: 20120306
  Transmission Date: 20120608
  Serious: Yes (Hospitalization)
  Sender: FDA-Public Use
  Company Number: 2012ST000249

PATIENT
  Age: 6 Year
  Sex: Male
  Weight: 34.7 kg

DRUGS (18)
  1. ONCASPAR [Suspect]
     Indication: ACUTE LYMPHOCYTIC LEUKAEMIA
     Dosage: 2500 UG/M**2;QD;IM
     Route: 030
     Dates: start: 20120114, end: 20120122
  2. DOXORUBICIN HCL [Suspect]
     Indication: ACUTE LYMPHOCYTIC LEUKAEMIA
     Dosage: 60 MG/M**2;X1;IV
     Route: 042
     Dates: start: 20120114, end: 20120114
  3. HYDROCORTISONE [Suspect]
     Indication: ACUTE LYMPHOCYTIC LEUKAEMIA
     Dates: start: 20120114
  4. ACYCLOVIR [Concomitant]
  5. CYTARABINE [Suspect]
     Indication: ACUTE LYMPHOCYTIC LEUKAEMIA
     Dosage: INTH
     Route: 037
     Dates: start: 20120114
  6. AMIKACIN [Concomitant]
  7. MEROPENEM [Concomitant]
  8. VANCOMYCIN [Concomitant]
  9. VINCRISTINE [Suspect]
     Indication: ACUTE LYMPHOCYTIC LEUKAEMIA
     Dosage: 1.5 MG/M**2;QW;IV
     Route: 042
     Dates: start: 20120114, end: 20120124
  10. AMBISOME [Concomitant]
  11. KYTRIL [Concomitant]
  12. VELCADE [Suspect]
     Indication: ACUTE LYMPHOCYTIC LEUKAEMIA
     Dosage: 1.3 MG/M**2;QD;IV
     Route: 042
     Dates: start: 20120114, end: 20120124
  13. BACTRIM [Concomitant]
  14. NYSTATIN [Concomitant]
  15. ATIVAN [Concomitant]
  16. PREDNISONE TAB [Suspect]
     Indication: ACUTE LYMPHOCYTIC LEUKAEMIA
     Dosage: 20 MG/M**2;QD;PO
     Route: 048
     Dates: start: 20120114, end: 20120124
  17. METHOTREXATE [Suspect]
     Indication: ACUTE LYMPHOCYTIC LEUKAEMIA
     Dosage: INTH
     Route: 037
     Dates: start: 20120114
  18. CEFEPIME [Concomitant]

REACTIONS (6)
  - PANCREATITIS [None]
  - STOMATITIS NECROTISING [None]
  - REFUSAL OF TREATMENT BY RELATIVE [None]
  - ZYGOMYCOSIS [None]
  - ORAL FUNGAL INFECTION [None]
  - PROCEDURAL PAIN [None]
